APPROVED DRUG PRODUCT: AZILSARTAN MEDOXOMIL AND CHLORTHALIDONE
Active Ingredient: AZILSARTAN KAMEDOXOMIL; CHLORTHALIDONE
Strength: EQ 40MG MEDOXOMIL;12.5MG
Dosage Form/Route: TABLET;ORAL
Application: A217490 | Product #001 | TE Code: AB
Applicant: ALKEM LABORATORIES LTD
Approved: Jan 21, 2025 | RLD: No | RS: No | Type: RX